FAERS Safety Report 4889521-5 (Version None)
Quarter: 2006Q1

REPORT INFORMATION
  Report Type: 
  Country: None (occurrence: None)
  Receive Date: 20060124
  Receipt Date: 20051101
  Transmission Date: 20060701
  Serious: Yes (Disabling)
  Sender: FDA-Public Use
  Company Number: PHFR2005GB03602

PATIENT
  Age: 86 Year
  Sex: Male
  Weight: 79 kg

DRUGS (6)
  1. TEGRETOL [Suspect]
     Indication: EPILEPSY
     Dosage: 600 MG, BID
     Route: 048
  2. ALENDRONIC ACID [Concomitant]
     Indication: OSTEOPOROSIS
     Dosage: 75 MG, QW
     Route: 048
     Dates: start: 20040916
  3. ADCAL-D3 [Concomitant]
     Indication: OSTEOPOROSIS
     Dosage: 1 TABLET, BID
     Route: 048
     Dates: start: 20040916
  4. SIMVASTATIN [Concomitant]
     Indication: BLOOD CHOLESTEROL INCREASED
     Dosage: 20MG/ON
     Route: 048
     Dates: start: 20041007
  5. TOPIRAMATE [Concomitant]
     Indication: EPILEPSY
     Dosage: 25MG/ON
     Route: 048
     Dates: start: 20040930
  6. PHENYTOIN [Concomitant]
     Indication: EPILEPSY
     Dosage: 50MG/OM
     Route: 048
     Dates: start: 20030612

REACTIONS (1)
  - DYSPHAGIA [None]
